FAERS Safety Report 10305048 (Version 2)
Quarter: 2014Q3

REPORT INFORMATION
  Report Type: Spontaneous
  Country: IT (occurrence: None)
  Receive Date: 20140710
  Receipt Date: 20140717
  Transmission Date: 20150326
  Serious: Yes (Other)
  Sender: FDA-Public Use
  Company Number: AUR-APL-2014-07268

PATIENT
  Age: 63 Year
  Sex: Male

DRUGS (3)
  1. GABAPENTIN. [Suspect]
     Active Substance: GABAPENTIN
     Indication: BIPOLAR DISORDER
     Route: 048
     Dates: start: 20140101, end: 20140415
  2. HALDOL [Suspect]
     Active Substance: HALOPERIDOL
     Indication: BIPOLAR DISORDER
     Route: 048
     Dates: start: 20140521, end: 20140605
  3. RISPERDAL [Suspect]
     Active Substance: RISPERIDONE
     Indication: BIPOLAR DISORDER
     Route: 048
     Dates: start: 20130101, end: 20140415

REACTIONS (15)
  - Dysphagia [None]
  - Dysarthria [None]
  - Insomnia [None]
  - Bradykinesia [None]
  - Adverse reaction [None]
  - Speech disorder [None]
  - Tongue discolouration [None]
  - Oromandibular dystonia [None]
  - Weight decreased [None]
  - Psychomotor hyperactivity [None]
  - Logorrhoea [None]
  - Hypertonia [None]
  - Extrapyramidal disorder [None]
  - Tongue movement disturbance [None]
  - Tremor [None]

NARRATIVE: CASE EVENT DATE: 20140523
